FAERS Safety Report 9110166 (Version 2)
Quarter: 2013Q1

REPORT INFORMATION
  Report Type: Report from Study
  Country: CA (occurrence: CA)
  Receive Date: 20130222
  Receipt Date: 20130322
  Transmission Date: 20140127
  Serious: Yes (Hospitalization)
  Sender: FDA-Public Use
  Company Number: CA-JNJFOC-20130208041

PATIENT
  Age: 63 Year
  Sex: Male
  Weight: 87.3 kg

DRUGS (14)
  1. REMICADE [Suspect]
     Indication: COLITIS ULCERATIVE
     Route: 042
     Dates: start: 20101027
  2. CANDESARTAN [Concomitant]
     Route: 065
  3. METOPROLOL [Concomitant]
     Route: 065
  4. AMIODARONE [Concomitant]
     Route: 065
  5. PANTOPRAZOLE [Concomitant]
     Route: 065
  6. WARFARIN [Concomitant]
     Route: 065
  7. FERROUS GLUCONATE [Concomitant]
     Route: 065
  8. ROSUVASTATIN [Concomitant]
     Route: 065
  9. ACTONEL [Concomitant]
     Route: 065
  10. ENTOCORT [Concomitant]
     Route: 065
  11. ADALAT [Concomitant]
     Route: 065
  12. ECASA [Concomitant]
     Route: 065
  13. MESASAL [Concomitant]
     Route: 065
  14. IMODIUM [Concomitant]
     Route: 065

REACTIONS (1)
  - Cerebrovascular accident [Unknown]
